FAERS Safety Report 11911957 (Version 2)
Quarter: 2016Q1

REPORT INFORMATION
  Report Type: Report from Study
  Country: US (occurrence: US)
  Receive Date: 20160112
  Receipt Date: 20160202
  Transmission Date: 20160526
  Serious: Yes (Hospitalization)
  Sender: FDA-Public Use
  Company Number: US-TEVA-625023USA

PATIENT
  Age: 56 Year
  Sex: Female
  Weight: 73.55 kg

DRUGS (24)
  1. CYCLOPHOSPHAMIDE. [Suspect]
     Active Substance: CYCLOPHOSPHAMIDE
     Indication: TRIPLE NEGATIVE BREAST CANCER
     Dosage: 42.8571 MG/M2 DAILY; DAY 1 OF FOUR 14-DAY CYCLES DURING CHEMOTHERAPY SEGMENT 2
     Route: 042
     Dates: start: 20151105, end: 20151105
  2. DOXORUBICIN [Suspect]
     Active Substance: DOXORUBICIN
     Indication: TRIPLE NEGATIVE BREAST CANCER
     Dosage: 4.2857 MG/M2 DAILY; DAY 1 OF FOUR 14-DAY CYCLES DURING CHEMOTHERAPY SEGMENT 2
     Route: 042
     Dates: start: 20151105, end: 20151105
  3. LORAZEPAM. [Concomitant]
     Active Substance: LORAZEPAM
     Indication: INSOMNIA
     Dosage: 0.5 MG  AS REQUIRED
     Route: 048
     Dates: start: 20150810
  4. ZOFRAN [Concomitant]
     Active Substance: ONDANSETRON HYDROCHLORIDE
     Dosage: ONE TIME (8 MG)
     Route: 048
     Dates: start: 20151022, end: 20151022
  5. NORCO [Concomitant]
     Active Substance: ACETAMINOPHEN\HYDROCODONE BITARTRATE
     Indication: BREAST TENDERNESS
     Dosage: 5/325 MG AS REQUIRED
     Route: 048
     Dates: start: 20150729
  6. DECADRON [Concomitant]
     Active Substance: DEXAMETHASONE
     Indication: PROPHYLAXIS
     Dosage: DURING CHEMOTHERAPY TREATMENTS (12 MG)
     Dates: start: 20150813
  7. DOXORUBICIN [Suspect]
     Active Substance: DOXORUBICIN
     Dosage: 3.5714 MG/M2 DAILY; DAY 1 OF FOUR 14-DAY CYCLES DURING CHEMOTHERAPY SEGMENT 2
     Route: 042
     Dates: start: 20151119
  8. ABT-888 (VELIPARIB) (BLINDED) [Suspect]
     Active Substance: VELIPARIB
     Indication: TRIPLE NEGATIVE BREAST CANCER
     Dosage: CHEMOTHERAPY SEGMENT 1 (2 IN 1 D)
     Route: 048
     Dates: start: 20150813, end: 20151105
  9. SODIUM CHLORIDE. [Concomitant]
     Active Substance: SODIUM CHLORIDE
     Indication: PROPHYLAXIS
     Dosage: DURING CHEMOTHERAPY TREATMENTS (500 ML)
     Route: 042
     Dates: start: 20150813
  10. ULTRAM [Concomitant]
     Active Substance: TRAMADOL HYDROCHLORIDE
     Indication: BREAST TENDERNESS
     Dosage: 50 MG AS REQUIRED
     Route: 048
     Dates: start: 20150813
  11. CYCLOPHOSPHAMIDE. [Suspect]
     Active Substance: CYCLOPHOSPHAMIDE
     Dosage: 35.7143 MG/M2 DAILY; DAY 1 OF FOUR 14-DAY CYCLES DURING CHEMOTHERAPY SEGMENT 2
     Route: 042
     Dates: start: 20151119
  12. ALOXI [Concomitant]
     Active Substance: PALONOSETRON HYDROCHLORIDE
     Indication: PROPHYLAXIS
     Dosage: DURING CHEMOTHERAPY TREATMENTS (0.25 MG)
     Route: 042
     Dates: start: 20150813, end: 20151015
  13. PACLITAXEL. [Suspect]
     Active Substance: PACLITAXEL
     Indication: TRIPLE NEGATIVE BREAST CANCER
     Dosage: 11.4286 MG/M2 DAILY; DAY 1 OF 12 WEEKLY CYCLES DURING CHEMOTHERAPY SEGMENT 1
     Route: 042
     Dates: start: 20150813, end: 20151029
  14. CARBOPLATIN. [Suspect]
     Active Substance: CARBOPLATIN
     Indication: TRIPLE NEGATIVE BREAST CANCER
     Dosage: DAY 1 OF FOUR 21-DAY CYCLES DURING CHEMOTHERAPY SEGMENT 1 (1 IN 21 D)
     Route: 042
     Dates: start: 20150813, end: 20151015
  15. BENADRYL [Concomitant]
     Active Substance: DIPHENHYDRAMINE HYDROCHLORIDE
     Dosage: DURING CHEMOTHERAPY TREATMENTS (25 MG)
     Route: 042
     Dates: start: 20150827
  16. EMEND [Concomitant]
     Active Substance: APREPITANT
     Indication: PROPHYLAXIS
     Route: 042
     Dates: start: 20150813, end: 20151015
  17. ZOFRAN [Concomitant]
     Active Substance: ONDANSETRON HYDROCHLORIDE
     Indication: NAUSEA
     Dosage: ONE TIME (8 MG)
     Route: 048
     Dates: start: 20151008, end: 20151008
  18. CIPROFLOXACIN HCL [Concomitant]
     Active Substance: CIPROFLOXACIN HYDROCHLORIDE
     Indication: URINARY TRACT INFECTION
     Dosage: 1000 MILLIGRAM DAILY;
     Route: 048
     Dates: start: 20151022, end: 20151026
  19. DEXAMETHASONE. [Concomitant]
     Active Substance: DEXAMETHASONE
     Indication: PROPHYLAXIS
     Dosage: DURING CHEMOTHERAPY TREATMENTS (4 MG)
     Route: 048
     Dates: start: 20150810
  20. BENADRYL [Concomitant]
     Active Substance: DIPHENHYDRAMINE HYDROCHLORIDE
     Indication: PROPHYLAXIS
     Dosage: DURING CHEMOTHERAPY TREATMENTS (50 MG)
     Route: 042
     Dates: start: 20150813, end: 20150820
  21. PEPCID [Concomitant]
     Active Substance: FAMOTIDINE
     Indication: PROPHYLAXIS
     Dosage: DURING CHEMOTHERAPY TREATMENT (50 ML)
     Route: 042
     Dates: start: 20150813
  22. POTASSIUM [Concomitant]
     Active Substance: POTASSIUM
     Indication: HYPOKALAEMIA
     Dosage: 20 MILLIEQUIVALENTS DAILY;
     Route: 048
     Dates: start: 20151015
  23. OMEPRAZOLE. [Concomitant]
     Active Substance: OMEPRAZOLE
     Indication: EPIGASTRIC DISCOMFORT
     Dosage: 20 MG, AS REQUIRED
     Route: 048
     Dates: start: 20150827
  24. PROCHLORPERAZINE. [Concomitant]
     Active Substance: PROCHLORPERAZINE
     Indication: PROPHYLAXIS
     Dosage: AS REQUIRED
     Route: 048
     Dates: start: 20150810

REACTIONS (1)
  - Malaise [Recovered/Resolved]

NARRATIVE: CASE EVENT DATE: 20151113
